FAERS Safety Report 4491910-8 (Version None)
Quarter: 2004Q4

REPORT INFORMATION
  Report Type: 
  Country: None (occurrence: None)
  Receive Date: 20041029
  Receipt Date: 20041029
  Transmission Date: 20050328
  Serious: Yes (Hospitalization)
  Sender: FDA-Public Use
  Company Number: None

PATIENT
  Age: 69 Year
  Sex: Female

DRUGS (7)
  1. WARFARIN   5MG [Suspect]
     Indication: PULMONARY EMBOLISM
     Dosage: 5MG/7.5MG  ALTERNTE DAYS   ORAL
     Route: 048
     Dates: start: 20040215, end: 20040617
  2. VICODIN [Concomitant]
  3. FOLIC ACID [Concomitant]
  4. COLCHICINE [Concomitant]
  5. PREDNISONE [Concomitant]
  6. PANTOPRAZOLE [Concomitant]
  7. METHOTREXATE [Concomitant]

REACTIONS (3)
  - ANAEMIA [None]
  - GASTROINTESTINAL HAEMORRHAGE [None]
  - HYPOPROTHROMBINAEMIA [None]
